FAERS Safety Report 13766600 (Version 1)
Quarter: 2017Q3

REPORT INFORMATION
  Report Type: Spontaneous
  Country: GB (occurrence: GB)
  Receive Date: 20170719
  Receipt Date: 20170719
  Transmission Date: 20171127
  Serious: Yes (Hospitalization, Other)
  Sender: FDA-Public Use
  Company Number: GB-SA-2017SA117173

PATIENT
  Sex: Male

DRUGS (2)
  1. FABRAZYME [Suspect]
     Active Substance: AGALSIDASE BETA
     Route: 041
     Dates: end: 20170612
  2. MEBEVERINE [Concomitant]
     Active Substance: MEBEVERINE
     Route: 065

REACTIONS (4)
  - Cellulitis [Unknown]
  - Gastrointestinal disorder [Unknown]
  - Localised infection [Unknown]
  - Malaise [Not Recovered/Not Resolved]
